FAERS Safety Report 23369636 (Version 1)
Quarter: 2024Q1

REPORT INFORMATION
  Report Type: Other
  Country: None (occurrence: US)
  Receive Date: 20240105
  Receipt Date: 20240105
  Transmission Date: 20240410
  Serious: Yes (Other)
  Sender: FDA-Public Use
  Company Number: US-SIGA Technologies, Inc.-2150193

PATIENT
  Age: 35 Year
  Sex: Male

DRUGS (3)
  1. TPOXX [Suspect]
     Active Substance: TECOVIRIMAT
     Indication: Monkeypox
     Route: 048
  2. CEPHALEXIN [Concomitant]
     Active Substance: CEPHALEXIN
  3. BICTEGRAVIR\EMTRICITABINE\TENOFOVIR ALAFENAMIDE [Concomitant]
     Active Substance: BICTEGRAVIR\EMTRICITABINE\TENOFOVIR ALAFENAMIDE

REACTIONS (1)
  - Drug resistance [Unknown]
